FAERS Safety Report 5729676-3 (Version None)
Quarter: 2008Q2

REPORT INFORMATION
  Report Type: 
  Country: None (occurrence: None)
  Receive Date: 20080506
  Receipt Date: 20080409
  Transmission Date: 20081010
  Serious: No
  Sender: FDA-Public Use
  Company Number: US-BOEHRINGER INGELHEIM GMBH, GERMANY-2008-BP-06133BP

PATIENT
  Age: 19 Month
  Sex: Female
  Weight: 14 kg

DRUGS (1)
  1. METACAM ORAL SUSPENSION [Suspect]
     Route: 048
     Dates: start: 20080409, end: 20080409

REACTIONS (1)
  - ACCIDENTAL EXPOSURE [None]
